FAERS Safety Report 5446890-5 (Version None)
Quarter: 2007Q3

REPORT INFORMATION
  Report Type: 
  Country: None (occurrence: None)
  Receive Date: 20070907
  Receipt Date: 20070828
  Transmission Date: 20080115
  Serious: Yes (Other)
  Sender: FDA-Public Use
  Company Number: PT-PFIZER INC-2007073094

PATIENT
  Age: 55 Year
  Sex: Female

DRUGS (2)
  1. CHAMPIX [Suspect]
     Indication: SMOKING CESSATION THERAPY
     Route: 048
  2. NORVASC [Concomitant]
     Route: 048

REACTIONS (2)
  - BACK PAIN [None]
  - OEDEMA PERIPHERAL [None]
